FAERS Safety Report 10432420 (Version 2)
Quarter: 2014Q3

REPORT INFORMATION
  Report Type: Spontaneous
  Country: US (occurrence: US)
  Receive Date: 20140905
  Receipt Date: 20140917
  Transmission Date: 20150326
  Serious: Yes (Other)
  Sender: FDA-Public Use
  Company Number: US-AMGEN-USASP2014067125

PATIENT
  Age: 45 Year
  Sex: Female

DRUGS (1)
  1. ENBREL [Suspect]
     Active Substance: ETANERCEPT
     Indication: RHEUMATOID ARTHRITIS
     Dosage: 50 MG, QWK
     Route: 065
     Dates: start: 20080131

REACTIONS (8)
  - Scar [Recovered/Resolved]
  - Vocal cord cyst [Recovered/Resolved]
  - Vocal cord thickening [Recovered/Resolved]
  - Tendon disorder [Recovered/Resolved]
  - Foot deformity [Recovered/Resolved]
  - Musculoskeletal disorder [Not Recovered/Not Resolved]
  - Dysphonia [Recovered/Resolved]
  - Injection site pain [Not Recovered/Not Resolved]

NARRATIVE: CASE EVENT DATE: 2008
